FAERS Safety Report 8552569-3 (Version None)
Quarter: 2012Q3

REPORT INFORMATION
  Report Type: 
  Country: None (occurrence: None)
  Receive Date: 20120719
  Receipt Date: 20120710
  Transmission Date: 20120928
  Serious: Yes (Other)
  Sender: FDA-Public Use
  Company Number: FK201201946

PATIENT
  Age: 62 Year
  Sex: Female

DRUGS (1)
  1. IFOSFAMIDE [Suspect]
     Indication: SARCOMA METASTATIC

REACTIONS (2)
  - NEUROTOXICITY [None]
  - ENCEPHALOPATHY [None]
